FAERS Safety Report 18335969 (Version 1)
Quarter: 2020Q4

REPORT INFORMATION
  Report Type: Spontaneous
  Country: IT (occurrence: IT)
  Receive Date: 20201001
  Receipt Date: 20201001
  Transmission Date: 20210113
  Serious: Yes (Disabling)
  Sender: FDA-Public Use
  Company Number: IT-MYLANLABS-2020M1083046

PATIENT
  Age: 42 Year
  Sex: Female
  Weight: 66 kg

DRUGS (1)
  1. LEVOFLOXACIN. [Suspect]
     Active Substance: LEVOFLOXACIN
     Indication: BACTERIAL URETHRITIS
     Dosage: 500 MILLIGRAM, QD
     Route: 048
     Dates: start: 20200907, end: 20200909

REACTIONS (3)
  - Respiratory fatigue [Unknown]
  - Burning sensation [Unknown]
  - Tendonitis [Unknown]

NARRATIVE: CASE EVENT DATE: 20200909
